FAERS Safety Report 7950352-0 (Version None)
Quarter: 2011Q4

REPORT INFORMATION
  Report Type: 
  Country: None (occurrence: None)
  Receive Date: 20111130
  Receipt Date: 20111121
  Transmission Date: 20120403
  Serious: Yes (Hospitalization)
  Sender: FDA-Public Use
  Company Number: ES-CEPHALON-2011006000

PATIENT
  Age: 45 Year
  Sex: Male

DRUGS (6)
  1. VENLAFAXINE [Concomitant]
  2. FENTANYL CITRATE [Suspect]
     Indication: BREAKTHROUGH PAIN
     Route: 002
  3. FENTANYL CITRATE [Suspect]
     Route: 002
  4. OXYCODONE HCL [Suspect]
  5. FENTANYL-100 [Suspect]
     Route: 062
  6. GABAPENTIN [Concomitant]

REACTIONS (4)
  - DRUG ABUSE [None]
  - INTENTIONAL DRUG MISUSE [None]
  - DRUG DEPENDENCE [None]
  - DRUG PRESCRIBING ERROR [None]
